FAERS Safety Report 25945621 (Version 2)
Quarter: 2025Q4

REPORT INFORMATION
  Report Type: Spontaneous
  Country: CH (occurrence: CH)
  Receive Date: 20251021
  Receipt Date: 20251203
  Transmission Date: 20260117
  Serious: Yes (Hospitalization, Other)
  Sender: ELI LILLY AND COMPANY
  Company Number: CH-ELI_LILLY_AND_COMPANY-CH202509007323

PATIENT
  Age: 76 Year
  Sex: Male
  Weight: 71 kg

DRUGS (5)
  1. TADALAFIL [Suspect]
     Active Substance: TADALAFIL
     Indication: Prostatic obstruction
     Dosage: 5 MG, DAILY
     Route: 048
     Dates: start: 2023, end: 20250817
  2. TADALAFIL [Suspect]
     Active Substance: TADALAFIL
     Dosage: 20 MG, UNKNOWN
     Route: 065
     Dates: start: 20250814
  3. TADALAFIL [Suspect]
     Active Substance: TADALAFIL
     Dosage: 20 MG, UNKNOWN
     Route: 065
     Dates: start: 20250816
  4. ASPIRIN [Concomitant]
     Active Substance: ASPIRIN
     Indication: Coronary artery disease
     Dosage: 100 MG, UNKNOWN
     Route: 065
     Dates: start: 2008
  5. ATORVASTATIN EZETIMIB ZENTIVA [Concomitant]
     Indication: Product used for unknown indication
     Dosage: UNK, UNKNOWN
     Route: 065
     Dates: start: 2008

REACTIONS (4)
  - Deafness unilateral [Not Recovered/Not Resolved]
  - Vertigo positional [Not Recovered/Not Resolved]
  - Lumbar vertebral fracture [Unknown]
  - Lipoma [Unknown]

NARRATIVE: CASE EVENT DATE: 20250817
